FAERS Safety Report 6895609-X (Version None)
Quarter: 2010Q3

REPORT INFORMATION
  Report Type: 
  Country: None (occurrence: None)
  Receive Date: 20100802
  Receipt Date: 20100729
  Transmission Date: 20110219
  Serious: Yes (Life-Threatening, Hospitalization, Disabling, Other)
  Sender: FDA-Public Use
  Company Number: PHHO2009GB14078

PATIENT
  Sex: Female

DRUGS (12)
  1. AFINITOR [Interacting]
     Indication: ACUTE MYELOID LEUKAEMIA
     Dosage: UNK
     Dates: start: 20090928, end: 20091102
  2. ETOPOSIDE [Interacting]
     Indication: ACUTE MYELOID LEUKAEMIA
     Dosage: UNK
     Dates: start: 20090928, end: 20091005
  3. DAUNORUBICIN HCL [Suspect]
     Indication: ACUTE MYELOID LEUKAEMIA
     Dosage: UNK
     Dates: start: 20090928, end: 20091005
  4. ARA-C [Suspect]
     Indication: ACUTE MYELOID LEUKAEMIA
     Dosage: UNK
     Dates: start: 20090928, end: 20091005
  5. POSACONAZOLE [Suspect]
  6. CYCLIZINE [Concomitant]
  7. OMEPRAZOLE [Concomitant]
  8. RALOXIFENE HCL [Concomitant]
  9. ORAMORPH SR [Concomitant]
  10. LEVOTHYROXINE SODIUM [Concomitant]
  11. NULYTELY [Concomitant]
  12. MYLOTARG [Concomitant]

REACTIONS (9)
  - ALANINE AMINOTRANSFERASE ABNORMAL [None]
  - ASPARTATE AMINOTRANSFERASE ABNORMAL [None]
  - COLOSTOMY [None]
  - DRUG INTERACTION [None]
  - FEMALE GENITAL TRACT FISTULA [None]
  - INFECTION [None]
  - LIVER FUNCTION TEST ABNORMAL [None]
  - RECTAL ABSCESS [None]
  - VAGINAL DISCHARGE [None]
